FAERS Safety Report 12089721 (Version 1)
Quarter: 2016Q1

REPORT INFORMATION
  Report Type: Spontaneous
  Country: CH (occurrence: CH)
  Receive Date: 20160218
  Receipt Date: 20160218
  Transmission Date: 20160526
  Serious: Yes (Other)
  Sender: FDA-Public Use
  Company Number: CH-ASTRAZENECA-2016SE14828

PATIENT
  Age: 20183 Day
  Sex: Female

DRUGS (12)
  1. ASPIRIN CARDIO [Concomitant]
     Active Substance: ASPIRIN
  2. CONCOR [Concomitant]
     Active Substance: BISOPROLOL FUMARATE
  3. ALDACTONE [Concomitant]
     Active Substance: SPIRONOLACTONE
  4. ISOKET [Concomitant]
     Active Substance: ISOSORBIDE DINITRATE
     Dosage: AS NEEDED
  5. NEXIUM [Suspect]
     Active Substance: ESOMEPRAZOLE MAGNESIUM
     Route: 048
  6. CHONDROSULF [Concomitant]
     Active Substance: CHONDROITIN SULFATE (CHICKEN)
  7. TOREM [Concomitant]
     Active Substance: TORSEMIDE
  8. SORTIS [Concomitant]
     Active Substance: ATORVASTATIN
  9. LIPANTHYL [Concomitant]
     Active Substance: FENOFIBRATE
  10. ATACAND [Concomitant]
     Active Substance: CANDESARTAN CILEXETIL
  11. CORVATON [Concomitant]
     Active Substance: MOLSIDOMINE
  12. ZOLOFT [Concomitant]
     Active Substance: SERTRALINE HYDROCHLORIDE

REACTIONS (1)
  - Neuroendocrine tumour [Not Recovered/Not Resolved]

NARRATIVE: CASE EVENT DATE: 20150513
